FAERS Safety Report 13648388 (Version 4)
Quarter: 2018Q2

REPORT INFORMATION
  Report Type: Spontaneous
  Country: US (occurrence: US)
  Receive Date: 20170613
  Receipt Date: 20180606
  Transmission Date: 20180711
  Serious: No
  Sender: FDA-Public Use
  Company Number: US-PFIZER INC-2017253896

PATIENT
  Sex: Male
  Weight: 81.63 kg

DRUGS (2)
  1. XANAX [Suspect]
     Active Substance: ALPRAZOLAM
     Indication: ANXIETY
     Dosage: 4 MG, DAILY (2 MG IN THE AM AND 2 MG IN THE PM/4 A DAY ONE MG EACH)
  2. SUBOXONE [Suspect]
     Active Substance: BUPRENORPHINE HYDROCHLORIDE\NALOXONE HYDROCHLORIDE
     Dosage: 8 MG, TWICE A DAY (ONE MORNING, ONE EVENING)

REACTIONS (2)
  - Road traffic accident [Unknown]
  - Impaired driving ability [Unknown]
